FAERS Safety Report 18383511 (Version 2)
Quarter: 2020Q4

REPORT INFORMATION
  Report Type: Spontaneous
  Country: US (occurrence: US)
  Receive Date: 20201014
  Receipt Date: 20201106
  Transmission Date: 20210114
  Serious: No
  Sender: FDA-Public Use
  Company Number: US-BAYER-2020-221024

PATIENT
  Sex: Female

DRUGS (1)
  1. MIRENA [Suspect]
     Active Substance: LEVONORGESTREL
     Dosage: 20 ?G PER DAY CONTINUOUSLY
     Route: 015
     Dates: start: 2017

REACTIONS (6)
  - Menometrorrhagia [None]
  - Abdominal pain upper [None]
  - Menstruation delayed [None]
  - Abdominal pain lower [None]
  - Hypomenorrhoea [None]
  - Dyspareunia [None]

NARRATIVE: CASE EVENT DATE: 2018
